FAERS Safety Report 7114072-7 (Version None)
Quarter: 2010Q4

REPORT INFORMATION
  Report Type: 
  Country: None (occurrence: None)
  Receive Date: 20101119
  Receipt Date: 20101117
  Transmission Date: 20110411
  Serious: Yes (Other)
  Sender: FDA-Public Use
  Company Number: US-PFIZER INC-2010151399

PATIENT
  Sex: Female
  Weight: 68 kg

DRUGS (4)
  1. ANTIVERT [Suspect]
     Indication: MENIERE'S DISEASE
     Dosage: 25 MG, DAILY
     Route: 048
  2. VALIUM [Concomitant]
     Dosage: UNK
  3. LEVOTHROID [Concomitant]
     Dosage: UNK
  4. LIPITOR [Concomitant]
     Dosage: UNK

REACTIONS (2)
  - DRUG HYPERSENSITIVITY [None]
  - DYSKINESIA [None]
